FAERS Safety Report 4364457-7 (Version None)
Quarter: 2004Q2

REPORT INFORMATION
  Report Type: 
  Country: None (occurrence: None)
  Receive Date: 20040525
  Receipt Date: 20040428
  Transmission Date: 20050107
  Serious: Yes (Other)
  Sender: FDA-Public Use
  Company Number: AU-GLAXOSMITHKLINE-B0331487A

PATIENT
  Age: 39 Year
  Sex: Male

DRUGS (2)
  1. LAMOTRIGINE [Suspect]
     Indication: EPILEPSY
     Dosage: 50MG TWICE PER DAY
     Route: 048
  2. VALPROIC ACID [Concomitant]
     Indication: EPILEPSY
     Dosage: 200MG THREE TIMES PER DAY
     Dates: start: 19980101

REACTIONS (6)
  - BALANCE DISORDER [None]
  - FALL [None]
  - FEELING HOT [None]
  - PETIT MAL EPILEPSY [None]
  - PRURITUS [None]
  - SCRATCH [None]
